FAERS Safety Report 20457478 (Version 3)
Quarter: 2022Q1

REPORT INFORMATION
  Report Type: Spontaneous
  Country: JP (occurrence: JP)
  Receive Date: 20220210
  Receipt Date: 20220325
  Transmission Date: 20220423
  Serious: Yes (Life-Threatening)
  Sender: FDA-Public Use
  Company Number: JP-BAXTER-2022BAX002796

PATIENT
  Weight: 0.491 kg

DRUGS (3)
  1. IFEX [Suspect]
     Active Substance: IFOSFAMIDE
     Indication: Foetal exposure timing unspecified
     Route: 064
  2. ETOPOSIDE [Suspect]
     Active Substance: ETOPOSIDE
     Indication: Foetal exposure timing unspecified
     Route: 064
  3. CISPLATIN [Suspect]
     Active Substance: CISPLATIN
     Indication: Foetal exposure timing unspecified
     Route: 064

REACTIONS (3)
  - Nonreassuring foetal heart rate pattern [Unknown]
  - Foetal growth restriction [Unknown]
  - Foetal exposure during pregnancy [Unknown]
